FAERS Safety Report 8780795 (Version 1)
Quarter: 2012Q4

REPORT INFORMATION
  Report Type: 
  Country: US (occurrence: US)
  Receive Date: 20120913
  Receipt Date: 20120913
  Transmission Date: 20130627
  Serious: No
  Sender: FDA-Public Use
  Company Number: US-TEVA-358076USA

PATIENT
  Sex: Female

DRUGS (2)
  1. NUVIGIL [Suspect]
  2. PROVIGIL [Concomitant]

REACTIONS (1)
  - Feeling abnormal [Unknown]
